FAERS Safety Report 9306500 (Version 1)
Quarter: 2013Q2

REPORT INFORMATION
  Report Type: Spontaneous
  Country: US (occurrence: US)
  Receive Date: 20130523
  Receipt Date: 20130523
  Transmission Date: 20140414
  Serious: No
  Sender: FDA-Public Use
  Company Number: US-ASTRAZENECA-2013SE33979

PATIENT
  Age: 31 Year
  Sex: Female
  Weight: 99.8 kg

DRUGS (2)
  1. SEROQUEL XR [Suspect]
     Indication: BIPOLAR DISORDER
     Route: 048
     Dates: start: 20130322
  2. SAMPLE MEDICATION [Concomitant]

REACTIONS (4)
  - Adverse event [Recovered/Resolved]
  - Fatigue [Unknown]
  - Intentional drug misuse [Unknown]
  - Drug ineffective [Recovered/Resolved]
